FAERS Safety Report 8164146-7 (Version None)
Quarter: 2012Q1

REPORT INFORMATION
  Report Type: 
  Country: None (occurrence: None)
  Receive Date: 20120224
  Receipt Date: 20120213
  Transmission Date: 20120608
  Serious: Yes (Hospitalization)
  Sender: FDA-Public Use
  Company Number: AU-NOVEN-12AU004098

PATIENT
  Age: 38 Year
  Sex: Female

DRUGS (6)
  1. PAROXETINE [Suspect]
     Indication: PRODUCT USED FOR UNKNOWN INDICATION
     Dosage: 20 MG, MORNING
  2. RISPERIDONE [Suspect]
     Indication: PRODUCT USED FOR UNKNOWN INDICATION
     Dosage: 37.5 MG, EVERY 2 WEEKS
     Route: 030
  3. RISPERIDONE [Suspect]
     Dosage: 3 MG, EVENING
     Route: 048
  4. OLANZAPINE [Suspect]
     Dosage: 5 MG, BEDTIME
  5. OLANZAPINE [Suspect]
     Indication: PRODUCT USED FOR UNKNOWN INDICATION
     Dosage: 10 MG, BEDTIME
  6. BENZTROPINE MESYLATE [Concomitant]
     Indication: PRODUCT USED FOR UNKNOWN INDICATION

REACTIONS (15)
  - MOVEMENT DISORDER [None]
  - MUSCLE CONTRACTIONS INVOLUNTARY [None]
  - TREMOR [None]
  - SALIVARY HYPERSECRETION [None]
  - GAIT DISTURBANCE [None]
  - LIVER FUNCTION TEST ABNORMAL [None]
  - NAUSEA [None]
  - TACHYCARDIA [None]
  - DYSPHAGIA [None]
  - MUSCLE RIGIDITY [None]
  - PYREXIA [None]
  - HYPERHIDROSIS [None]
  - NEUROLEPTIC MALIGNANT SYNDROME [None]
  - FALL [None]
  - LABILE BLOOD PRESSURE [None]
